FAERS Safety Report 11182469 (Version 1)
Quarter: 2015Q2

REPORT INFORMATION
  Report Type: Spontaneous
  Country: US (occurrence: US)
  Receive Date: 20150611
  Receipt Date: 20150611
  Transmission Date: 20150821
  Serious: Yes (Other)
  Sender: FDA-Public Use
  Company Number: US-GLAXOSMITHKLINE-US2015GSK079695

PATIENT
  Sex: Female

DRUGS (3)
  1. LANOXIN [Suspect]
     Active Substance: DIGOXIN
     Indication: CARDIAC DISORDER
  2. VENTOLIN HFA [Suspect]
     Active Substance: ALBUTEROL SULFATE
     Indication: CHRONIC OBSTRUCTIVE PULMONARY DISEASE
  3. COREG [Suspect]
     Active Substance: CARVEDILOL
     Indication: PRODUCT USED FOR UNKNOWN INDICATION
     Dosage: 3.125 MG, UNK

REACTIONS (10)
  - Cardiac operation [Unknown]
  - Aneurysm [Unknown]
  - Hysterectomy [Recovered/Resolved]
  - Endometriosis [Recovered/Resolved]
  - Breast lump removal [Recovered/Resolved]
  - Thyroidectomy [Recovered/Resolved]
  - Cholecystectomy [Recovered/Resolved]
  - Neoplasm [Unknown]
  - Tumour excision [Unknown]
  - Catheterisation cardiac [Recovered/Resolved]
